FAERS Safety Report 7057418-0 (Version None)
Quarter: 2010Q4

REPORT INFORMATION
  Report Type: 
  Country: None (occurrence: None)
  Receive Date: 20101022
  Receipt Date: 20101008
  Transmission Date: 20110411
  Serious: Yes (Other)
  Sender: FDA-Public Use
  Company Number: FR-ACTELION-A-CH2010-40493

PATIENT
  Sex: Female

DRUGS (1)
  1. ZAVESCA [Suspect]
     Indication: NIEMANN-PICK DISEASE
     Dosage: UNK
     Route: 048

REACTIONS (5)
  - APHASIA [None]
  - DIARRHOEA [None]
  - GAIT DISTURBANCE [None]
  - NEUROLOGICAL DECOMPENSATION [None]
  - WEIGHT DECREASED [None]
